FAERS Safety Report 16638483 (Version 2)
Quarter: 2019Q3

REPORT INFORMATION
  Report Type: Spontaneous
  Country: US (occurrence: US)
  Receive Date: 20190726
  Receipt Date: 20190904
  Transmission Date: 20191004
  Serious: No
  Sender: FDA-Public Use
  Company Number: US-PFIZER INC-2019318852

PATIENT
  Age: 67 Year
  Sex: Male

DRUGS (2)
  1. EUCRISA [Suspect]
     Active Substance: CRISABOROLE
     Indication: DERMATITIS
     Dosage: UNK
     Route: 061
  2. EUCRISA [Suspect]
     Active Substance: CRISABOROLE
     Dosage: UNK, 2X/DAY (APPLY TO AFFECTED AREA(S) TWICE A DAY AS DIRECTED)

REACTIONS (4)
  - Product physical consistency issue [Unknown]
  - Application site pain [Unknown]
  - Poor quality product administered [Unknown]
  - Peripheral swelling [Unknown]
